FAERS Safety Report 25439383 (Version 1)
Quarter: 2025Q2

REPORT INFORMATION
  Report Type: Spontaneous
  Country: US (occurrence: None)
  Receive Date: 20250612
  Receipt Date: 20250612
  Transmission Date: 20250717
  Serious: Yes (Other)
  Sender: FDA-CTU
  Company Number: None

PATIENT
  Age: 38 Year
  Sex: Female
  Weight: 112.5 kg

DRUGS (2)
  1. ESCITALOPRAM [Suspect]
     Active Substance: ESCITALOPRAM OXALATE
     Indication: Generalised anxiety disorder
     Route: 048
     Dates: start: 20170915, end: 20250515
  2. lexapro 5mg [Concomitant]

REACTIONS (8)
  - Withdrawal syndrome [None]
  - Akathisia [None]
  - Paranoia [None]
  - Merycism [None]
  - Mania [None]
  - Photophobia [None]
  - Anger [None]
  - Agitation [None]

NARRATIVE: CASE EVENT DATE: 20250501
